FAERS Safety Report 10868832 (Version 2)
Quarter: 2015Q1

REPORT INFORMATION
  Report Type: Spontaneous
  Country: BR (occurrence: BR)
  Receive Date: 20150225
  Receipt Date: 20150324
  Transmission Date: 20150721
  Serious: Yes (Hospitalization, Other)
  Sender: FDA-Public Use
  Company Number: BR-PFIZER INC-2015069081

PATIENT
  Age: 59 Year
  Sex: Female

DRUGS (12)
  1. LIRAGLUTIDE (NN2211) [Suspect]
     Active Substance: LIRAGLUTIDE
     Indication: DIABETES MELLITUS
     Dosage: UNK, DAILY
     Route: 058
     Dates: start: 2012, end: 2012
  2. VITAMIN D [Concomitant]
     Active Substance: CHOLECALCIFEROL
     Indication: SUPPLEMENTATION THERAPY
     Dosage: UNK
     Route: 048
  3. ATENOLOL. [Suspect]
     Active Substance: ATENOLOL
     Indication: BLOOD PRESSURE
     Dosage: 25 MG, UNK
     Route: 048
     Dates: start: 201409
  4. DIOVAN HCT [Suspect]
     Active Substance: HYDROCHLOROTHIAZIDE\VALSARTAN
     Indication: HYPERTENSION
     Dosage: 160/12.5 MG
     Route: 048
  5. CALCIUM [Concomitant]
     Active Substance: CALCIUM
     Indication: SUPPLEMENTATION THERAPY
     Dosage: UNK
     Route: 048
  6. ARAVA [Suspect]
     Active Substance: LEFLUNOMIDE
     Indication: RHEUMATIC DISORDER
     Dosage: UNK
     Route: 065
     Dates: start: 2012, end: 2012
  7. LIRAGLUTIDE (NN2211) [Suspect]
     Active Substance: LIRAGLUTIDE
     Dosage: THREE TIMES PER WEEK
     Route: 058
  8. INSULIN [Suspect]
     Active Substance: INSULIN NOS
     Indication: DIABETES MELLITUS
     Dosage: UNK
     Route: 058
     Dates: start: 2012
  9. ONGLYZA [Suspect]
     Active Substance: SAXAGLIPTIN HYDROCHLORIDE
     Indication: DIABETES MELLITUS
     Dosage: 5 MG, UNK
     Route: 048
     Dates: start: 2012
  10. DIOVAN HCT [Suspect]
     Active Substance: HYDROCHLOROTHIAZIDE\VALSARTAN
     Dosage: 320/12,5 MG
     Route: 048
  11. FORXIGA [Suspect]
     Active Substance: DAPAGLIFLOZIN
     Indication: DIABETES MELLITUS
     Dosage: 10 MG, DAILY
     Route: 048
     Dates: start: 201410, end: 20150203
  12. GLIFAGE [Suspect]
     Active Substance: METFORMIN HYDROCHLORIDE
     Indication: DIABETES MELLITUS
     Dosage: UNK, 2X/DAY (NON AZ PRODUCT)
     Route: 048
     Dates: start: 2012

REACTIONS (13)
  - Polyp [Recovered/Resolved]
  - Anaemia [Recovered/Resolved]
  - Hyperglycaemia [Recovered/Resolved]
  - Vomiting [Recovered/Resolved]
  - Blood pressure inadequately controlled [Recovered/Resolved]
  - Rheumatic disorder [Recovered/Resolved]
  - Tooth abscess [Recovered/Resolved]
  - Eating disorder [Recovered/Resolved]
  - Diabetes mellitus inadequate control [Recovered/Resolved]
  - Sinusitis [Recovered/Resolved]
  - Fistula [Recovered/Resolved]
  - Tooth loss [Recovered/Resolved]
  - Nausea [Recovered/Resolved]

NARRATIVE: CASE EVENT DATE: 2012
